FAERS Safety Report 7692251-8 (Version None)
Quarter: 2011Q3

REPORT INFORMATION
  Report Type: 
  Country: None (occurrence: None)
  Receive Date: 20110818
  Receipt Date: 20110810
  Transmission Date: 20111222
  Serious: Yes (Other)
  Sender: FDA-Public Use
  Company Number: US-AMGEN-USASP2011041099

PATIENT
  Age: 69 Year
  Sex: Female

DRUGS (7)
  1. PREMARIN [Concomitant]
  2. PREDNISONE [Concomitant]
  3. PROLIA [Suspect]
     Indication: OSTEOPOROSIS POSTMENOPAUSAL
     Dates: start: 20110601
  4. XANAX [Concomitant]
  5. SYNTHROID [Concomitant]
  6. DIFLUCAN [Concomitant]
  7. TEKTURNA [Concomitant]

REACTIONS (29)
  - NECK PAIN [None]
  - EXFOLIATIVE RASH [None]
  - PELVIC PAIN [None]
  - ARTHRALGIA [None]
  - ERYTHEMA [None]
  - EAR PAIN [None]
  - PAIN IN EXTREMITY [None]
  - PARAESTHESIA [None]
  - MUSCLE SPASMS [None]
  - SENSORY LOSS [None]
  - NAUSEA [None]
  - HEADACHE [None]
  - SINUS DISORDER [None]
  - HAEMORRHAGE [None]
  - CYSTITIS ESCHERICHIA [None]
  - MELAENA [None]
  - PAIN IN JAW [None]
  - VOMITING [None]
  - DIARRHOEA [None]
  - PYREXIA [None]
  - BONE PAIN [None]
  - HERPES ZOSTER [None]
  - RASH [None]
  - SUICIDAL IDEATION [None]
  - HIP DISARTICULATION [None]
  - DENTAL CARE [None]
  - JOINT SWELLING [None]
  - ABDOMINAL PAIN UPPER [None]
  - BACK PAIN [None]
